FAERS Safety Report 17551367 (Version 1)
Quarter: 2020Q1

REPORT INFORMATION
  Report Type: Spontaneous
  Country: US (occurrence: US)
  Receive Date: 20200317
  Receipt Date: 20200317
  Transmission Date: 20200409
  Serious: No
  Sender: FDA-Public Use
  Company Number: US-UPSHER-SMITH LABORATORIES, LLC-2019USL00884

PATIENT
  Sex: Female
  Weight: 58.96 kg

DRUGS (10)
  1. GABAPENTIN. [Concomitant]
     Active Substance: GABAPENTIN
  2. MORPHINE SULFATE EXTENDED RELEASE (MALLINCKRODT PHARMACEUTICALS) [Suspect]
     Active Substance: MORPHINE SULFATE
     Indication: PAIN
     Dosage: 60 MG, 1X/DAY
  3. ENTYVIO [Concomitant]
     Active Substance: VEDOLIZUMAB
     Dosage: UNK
     Dates: start: 20181204
  4. MAGNESIUM [Concomitant]
     Active Substance: MAGNESIUM
  5. PREVALITE [Suspect]
     Active Substance: CHOLESTYRAMINE
     Dosage: 4 G, 2X/DAY
     Route: 048
     Dates: start: 201911
  6. OXYCODONE (MALLINCKRODT PHARMACEUTICALS) [Suspect]
     Active Substance: OXYCODONE
     Indication: PAIN
     Dosage: 90 MG, 1X/DAY
  7. IRON [Concomitant]
     Active Substance: IRON
  8. PREVALITE [Suspect]
     Active Substance: CHOLESTYRAMINE
     Indication: COLITIS ULCERATIVE
     Dosage: 4 G, 1X/DAY
     Route: 048
     Dates: start: 2019, end: 201911
  9. METHOTREXATE. [Concomitant]
     Active Substance: METHOTREXATE
  10. FOLIC ACID. [Concomitant]
     Active Substance: FOLIC ACID

REACTIONS (2)
  - Drug screen positive [Unknown]
  - Drug screen negative [Unknown]

NARRATIVE: CASE EVENT DATE: 2019
